FAERS Safety Report 8967273 (Version 1)
Quarter: 2012Q4

REPORT INFORMATION
  Report Type: 
  Country: US (occurrence: US)
  Receive Date: 20121214
  Receipt Date: 20121214
  Transmission Date: 20130627
  Serious: No
  Sender: FDA-Public Use
  Company Number: US-GLAXOSMITHKLINE-A0978632A

PATIENT
  Sex: Female

DRUGS (2)
  1. FLONASE [Suspect]
     Route: 045
  2. ALBUTEROL [Suspect]
     Route: 055

REACTIONS (4)
  - Epistaxis [Unknown]
  - Dyspnoea [Unknown]
  - Sleep disorder [Unknown]
  - Increased upper airway secretion [Unknown]
